FAERS Safety Report 4705670-6 (Version None)
Quarter: 2005Q2

REPORT INFORMATION
  Report Type: 
  Country: None (occurrence: None)
  Receive Date: 20050629
  Receipt Date: 20050620
  Transmission Date: 20051028
  Serious: Yes (Hospitalization)
  Sender: FDA-Public Use
  Company Number: OMPQ-NO-0506S-0866

PATIENT
  Age: 57 Year
  Sex: Female
  Weight: 63 kg

DRUGS (9)
  1. OMNIPAQUE 300 [Suspect]
     Indication: ANGINA UNSTABLE
     Dosage: 200-300 ML, SINGLE DOSE, I.A.
     Route: 013
     Dates: start: 20050530, end: 20050530
  2. TICLOPIDINE HCL [Concomitant]
  3. CILOSTAZOL (PLETAAL) [Concomitant]
  4. FAMOTIDINE (GASTER D) [Concomitant]
  5. ISOSORBIDE MONONITRATE (ITOROL) [Concomitant]
  6. LIPITOR [Concomitant]
  7. AMLODIPINE BESILATE (AMLODIN) [Concomitant]
  8. NICORANDIL (SIGMART) [Concomitant]
  9. ETIZOLAM (DEPAS) [Concomitant]

REACTIONS (7)
  - C-REACTIVE PROTEIN INCREASED [None]
  - HEPATIC STEATOSIS [None]
  - INFUSION RELATED REACTION [None]
  - JAUNDICE [None]
  - NAUSEA [None]
  - PYREXIA [None]
  - VOMITING [None]
